FAERS Safety Report 16031771 (Version 5)
Quarter: 2019Q2

REPORT INFORMATION
  Report Type: Spontaneous
  Country: PL (occurrence: PL)
  Receive Date: 20190304
  Receipt Date: 20190401
  Transmission Date: 20190711
  Serious: Yes (Hospitalization)
  Sender: FDA-Public Use
  Company Number: PL-PFIZER INC-2019091103

PATIENT
  Age: 27 Year
  Sex: Male
  Weight: 76 kg

DRUGS (12)
  1. VORICONAZOLE. [Concomitant]
     Active Substance: VORICONAZOLE
     Dosage: UNK
     Route: 065
     Dates: start: 20181127
  2. METHYLPREDNISOLONE SODIUM SUCCINATE. [Suspect]
     Active Substance: METHYLPREDNISOLONE SODIUM SUCCINATE
     Indication: ACUTE GRAFT VERSUS HOST DISEASE
     Dosage: EVERYDAY ON 2/DEC/2018 LAST DOSERECEIVED PRIOR TO SAE ONSET
     Route: 042
     Dates: start: 20181124, end: 20181226
  3. CIDOFOVIR. [Concomitant]
     Active Substance: CIDOFOVIR
     Dosage: 5 MG/KG (TOTAL DOSE 375 MG)
     Route: 042
     Dates: start: 20190115
  4. SIROLIMUS. [Suspect]
     Active Substance: SIROLIMUS
     Indication: PRODUCT USED FOR UNKNOWN INDICATION
     Dosage: UNK
     Route: 065
     Dates: start: 20181113
  5. SULFAMETHOXAZOLE/TRIMETHOPRIM [Concomitant]
     Dosage: UNK
  6. VALGANCICLOVIR [VALGANCICLOVIR HYDROCHLORIDE] [Suspect]
     Active Substance: VALGANCICLOVIR
     Indication: EPSTEIN-BARR VIRUS INFECTION
     Dosage: UNK
     Route: 065
  7. ITACITINIB [Suspect]
     Active Substance: ITACITINIB
     Indication: ACUTE GRAFT VERSUS HOST DISEASE
     Dosage: EVERY DAYON 2/DEC/2018 LAST DOSERECEIVED PRIOR TO SAE ONSET
     Route: 065
     Dates: start: 20181126
  8. ACYCLOVIR [ACICLOVIR] [Concomitant]
     Active Substance: ACYCLOVIR
     Dosage: UNK
     Route: 065
     Dates: start: 20181127
  9. ITACITINIB [Suspect]
     Active Substance: ITACITINIB
     Dosage: EVERYDAY
     Route: 065
     Dates: start: 20181231
  10. FOSCAVIR [Suspect]
     Active Substance: FOSCARNET SODIUM
     Indication: PRODUCT USED FOR UNKNOWN INDICATION
     Dosage: 8880 MG, UNK
     Route: 042
     Dates: start: 20181231
  11. METHYLPREDNISOLONE SODIUM SUCCINATE. [Suspect]
     Active Substance: METHYLPREDNISOLONE SODIUM SUCCINATE
     Dosage: EVERYDAY QOD (EVERY OTHER DAY)
     Route: 065
     Dates: start: 20181227, end: 20190102
  12. GANCICLOVIR SODIUM. [Suspect]
     Active Substance: GANCICLOVIR SODIUM
     Indication: ACUTE GRAFT VERSUS HOST DISEASE
     Dosage: 10 MG/KG, 1X/DAY
     Route: 042
     Dates: start: 20181126, end: 20181230

REACTIONS (4)
  - Drug resistance [Unknown]
  - Epstein-Barr virus infection [Recovered/Resolved]
  - Cytomegalovirus infection [Recovering/Resolving]
  - Pancytopenia [Recovering/Resolving]

NARRATIVE: CASE EVENT DATE: 20181203
